FAERS Safety Report 4948855-6 (Version None)
Quarter: 2006Q1

REPORT INFORMATION
  Report Type: 
  Country: None (occurrence: None)
  Receive Date: 20060321
  Receipt Date: 20060307
  Transmission Date: 20060701
  Serious: Yes (Death, Hospitalization)
  Sender: FDA-Public Use
  Company Number: DE-ABBOTT-06P-062-0327587-00

PATIENT
  Sex: Male

DRUGS (3)
  1. KALETRA [Suspect]
     Indication: HIV INFECTION
     Route: 048
     Dates: start: 20031203, end: 20040723
  2. DIDANOSINE [Concomitant]
     Indication: HIV INFECTION
  3. TENOFOVIR [Concomitant]
     Indication: HIV INFECTION

REACTIONS (1)
  - TUBERCULOSIS [None]
